FAERS Safety Report 9511156 (Version 2)
Quarter: 2013Q4

REPORT INFORMATION
  Report Type: Spontaneous
  Country: US (occurrence: None)
  Receive Date: 20130905
  Receipt Date: 20131024
  Transmission Date: 20140711
  Serious: Yes (Other)
  Sender: FDA-Public Use
  Company Number: ACO_38194_2013

PATIENT
  Age: 43 Year
  Sex: Female
  Weight: 55.8 kg

DRUGS (10)
  1. AMPYRA [Suspect]
     Indication: GAIT DISTURBANCE
     Dosage: 10 MG, Q 12 HRS, ORAL
     Route: 048
     Dates: start: 20130824, end: 20130825
  2. CENTRUM A TO ZINC (MINERALS NOS, VITAMINS NOS) TABLET [Concomitant]
  3. TRAZODONE HCL (TRAZODONE HYDROCHLORIDE) [Concomitant]
  4. WELLBUTRIN SR (BUPROPION HYDROCHLORIDE) TABLET [Concomitant]
  5. VITAMIN C (ASCORBIC ACID) TABLET [Concomitant]
  6. ADVIL (IBUPROFEN) CAPSULE [Concomitant]
  7. REBIF (INTERFERON BETA-1A) [Concomitant]
  8. MAG-SR PLUS CALCIUM (CALCIUM CARBONATE, MAGNESIUM CHLORIDE) [Concomitant]
  9. ACETAMINOPHEN (PARACETAMOL) TABLET [Concomitant]
  10. MULTIVITAMIN (VITAMINS NOS) POWDER (EXCEPT [DPO]) [Concomitant]

REACTIONS (7)
  - Swelling face [None]
  - Skin discolouration [None]
  - Hypoaesthesia [None]
  - Oedema peripheral [None]
  - Pyrexia [None]
  - Hypoaesthesia [None]
  - Gait disturbance [None]
